FAERS Safety Report 11499908 (Version 1)
Quarter: 2015Q3

REPORT INFORMATION
  Report Type: Spontaneous
  Country: CA (occurrence: CA)
  Receive Date: 20150914
  Receipt Date: 20150914
  Transmission Date: 20151125
  Serious: Yes (Hospitalization)
  Sender: FDA-Public Use
  Company Number: CA-ORION CORPORATION ORION PHARMA-TREX2015-0550

PATIENT
  Age: 60 Year
  Sex: Male

DRUGS (1)
  1. METHOTREXATE [Suspect]
     Active Substance: METHOTREXATE
     Route: 065

REACTIONS (7)
  - Product quality issue [Unknown]
  - Headache [Unknown]
  - Poor quality sleep [Unknown]
  - Cough [Unknown]
  - Gastrointestinal infection [Unknown]
  - Back pain [Unknown]
  - Pain in extremity [Unknown]
